FAERS Safety Report 8947015 (Version 1)
Quarter: 2012Q4

REPORT INFORMATION
  Report Type: 
  Country: US (occurrence: US)
  Receive Date: 20121205
  Receipt Date: 20121205
  Transmission Date: 20130627
  Serious: No
  Sender: FDA-Public Use
  Company Number: US-TEVA-358168USA

PATIENT
  Age: 61 Year
  Sex: Female
  Weight: 43.13 kg

DRUGS (1)
  1. QNASL [Suspect]
     Dosage: 160 Microgram Daily;
     Route: 045
     Dates: start: 20120831

REACTIONS (2)
  - Nasal discomfort [Unknown]
  - Headache [Unknown]
